FAERS Safety Report 9157217 (Version 1)
Quarter: 2013Q1

REPORT INFORMATION
  Report Type: Spontaneous
  Country: JP (occurrence: JP)
  Receive Date: 20130312
  Receipt Date: 20130312
  Transmission Date: 20140127
  Serious: Yes (Hospitalization)
  Sender: FDA-Public Use
  Company Number: JP-JNJFOC-20130208965

PATIENT
  Age: 14 Year
  Sex: Male

DRUGS (8)
  1. CONCERTA [Suspect]
     Indication: IRRITABILITY
     Route: 048
     Dates: start: 20130212, end: 20130212
  2. CONCERTA [Suspect]
     Indication: IRRITABILITY
     Route: 048
     Dates: start: 20101224, end: 20110729
  3. CONCERTA [Suspect]
     Indication: IRRITABILITY
     Route: 048
     Dates: start: 20100218, end: 20101223
  4. CONCERTA [Suspect]
     Indication: IRRITABILITY
     Route: 048
     Dates: start: 20091001, end: 20100217
  5. CONCERTA [Suspect]
     Indication: ATTENTION DEFICIT/HYPERACTIVITY DISORDER
     Route: 048
     Dates: start: 20130212, end: 20130212
  6. CONCERTA [Suspect]
     Indication: ATTENTION DEFICIT/HYPERACTIVITY DISORDER
     Route: 048
     Dates: start: 20101224, end: 20110729
  7. CONCERTA [Suspect]
     Indication: ATTENTION DEFICIT/HYPERACTIVITY DISORDER
     Route: 048
     Dates: start: 20100218, end: 20101223
  8. CONCERTA [Suspect]
     Indication: ATTENTION DEFICIT/HYPERACTIVITY DISORDER
     Route: 048
     Dates: start: 20091001, end: 20100217

REACTIONS (2)
  - Overdose [Unknown]
  - Agitation [Recovered/Resolved]
